FAERS Safety Report 9688752 (Version 2)
Quarter: 2013Q4

REPORT INFORMATION
  Report Type: Spontaneous
  Country: US (occurrence: US)
  Receive Date: 20131114
  Receipt Date: 20131118
  Transmission Date: 20140711
  Serious: Yes (Hospitalization)
  Sender: FDA-Public Use
  Company Number: US-BAXTER-2013BAX044078

PATIENT
  Age: 44 Year
  Sex: Female

DRUGS (6)
  1. DIANEAL LOW CALCIUM [Suspect]
     Indication: PERITONEAL DIALYSIS
     Dosage: AS NEEDED
     Route: 033
     Dates: end: 201311
  2. DIANEAL LOW CALCIUM [Suspect]
     Indication: PERITONEAL DIALYSIS
     Route: 033
  3. DIANEAL LOW CALCIUM [Suspect]
     Route: 033
     Dates: start: 201311
  4. DIANEAL LOW CALCIUM [Suspect]
     Indication: PERITONEAL DIALYSIS
     Dosage: AS NEEDED
     Route: 033
     Dates: end: 201311
  5. DIANEAL LOW CALCIUM [Suspect]
     Route: 033
     Dates: start: 201311
  6. DIANEAL LOW CALCIUM (ULTRABAG) [Suspect]
     Indication: PERITONEAL DIALYSIS
     Route: 033
     Dates: start: 201311

REACTIONS (6)
  - Pneumonia [Recovering/Resolving]
  - Peritoneal dialysis complication [Recovered/Resolved]
  - Abdominal distension [Unknown]
  - Dyspnoea [Recovered/Resolved]
  - Ultrafiltration failure [Unknown]
  - Abdominal distension [Unknown]
